FAERS Safety Report 8470240-3 (Version None)
Quarter: 2012Q2

REPORT INFORMATION
  Report Type: 
  Country: None (occurrence: None)
  Receive Date: 20120621
  Receipt Date: 20120621
  Transmission Date: 20120825
  Serious: Yes (Other)
  Sender: FDA-Public Use
  Company Number: None

PATIENT
  Age: 59 Year
  Sex: Female
  Weight: 63.5036 kg

DRUGS (2)
  1. VIIBRYD-VILAZODONE HCL TABLETS 10 MG FOREST PHARMACEUTICALS, [Suspect]
     Indication: DEPRESSION
     Dosage: 10 MG. ONCE A DAY PO
     Route: 048
     Dates: start: 20120420, end: 20120620
  2. VIIBRYD-VILAZODONE HCL TABLETS 10 MG FOREST PHARMACEUTICALS, [Suspect]
     Indication: ANXIETY
     Dosage: 10 MG. ONCE A DAY PO
     Route: 048
     Dates: start: 20120420, end: 20120620

REACTIONS (6)
  - HYPERHIDROSIS [None]
  - SWELLING FACE [None]
  - ERYTHEMA [None]
  - BLISTER [None]
  - URTICARIA [None]
  - SKIN EXFOLIATION [None]
